FAERS Safety Report 19765341 (Version 1)
Quarter: 2021Q3

REPORT INFORMATION
  Report Type: Spontaneous
  Country: BR (occurrence: BR)
  Receive Date: 20210830
  Receipt Date: 20210830
  Transmission Date: 20211014
  Serious: Yes (Hospitalization)
  Sender: FDA-Public Use
  Company Number: BR-PFIZER INC-202101027718

PATIENT
  Age: 79 Year
  Sex: Female

DRUGS (1)
  1. IBRANCE [Suspect]
     Active Substance: PALBOCICLIB
     Dosage: 100 MG, CYCLIC
     Dates: start: 20210715

REACTIONS (6)
  - Asthenia [Unknown]
  - Dysstasia [Unknown]
  - Dyspnoea [Unknown]
  - Feeding disorder [Unknown]
  - Nausea [Unknown]
  - Gait disturbance [Unknown]
